FAERS Safety Report 5279540-1 (Version None)
Quarter: 2007Q1

REPORT INFORMATION
  Report Type: 
  Country: None (occurrence: None)
  Receive Date: 20070328
  Receipt Date: 20070316
  Transmission Date: 20070707
  Serious: Yes (Other)
  Sender: FDA-Public Use
  Company Number: ES-PFIZER INC-2007021474

PATIENT
  Sex: Female
  Weight: 58 kg

DRUGS (11)
  1. XALATAN [Suspect]
     Indication: INTRAOCULAR PRESSURE INCREASED
     Route: 047
     Dates: start: 20070102, end: 20070205
  2. COSOPT [Concomitant]
     Route: 047
  3. PROGESTERONE [Concomitant]
     Route: 067
     Dates: start: 20070203
  4. LEVOTHROID [Concomitant]
     Route: 048
     Dates: start: 19970101
  5. IRON SULFATETHIAMIN COMPOUND TAB [Concomitant]
     Route: 048
     Dates: start: 20061219
  6. DHA [Concomitant]
     Route: 048
     Dates: start: 20070203
  7. IODINE [Concomitant]
     Route: 048
     Dates: start: 20070203
  8. FOLIC ACID [Concomitant]
     Route: 048
     Dates: start: 20070203
  9. IRON [Concomitant]
     Route: 048
     Dates: start: 20070203
  10. TRAVOPROST [Concomitant]
     Dates: start: 20070201
  11. TIMOLOL MALEATE [Concomitant]
     Dates: start: 20070201

REACTIONS (1)
  - ECTOPIC PREGNANCY [None]
